FAERS Safety Report 5976647-8 (Version None)
Quarter: 2008Q4

REPORT INFORMATION
  Report Type: 
  Country: None (occurrence: None)
  Receive Date: 20081201
  Receipt Date: 20081201
  Transmission Date: 20090506
  Serious: Yes (Hospitalization)
  Sender: FDA-Public Use
  Company Number: None

PATIENT
  Sex: Female
  Weight: 54.4316 kg

DRUGS (1)
  1. LOPRESSOR [Suspect]
     Indication: BLOOD PRESSURE
     Dosage: 50MG TWICE DAILY MANY YRS

REACTIONS (2)
  - HEART RATE DECREASED [None]
  - SYNCOPE [None]
